FAERS Safety Report 16161556 (Version 1)
Quarter: 2019Q2

REPORT INFORMATION
  Report Type: Spontaneous
  Country: US (occurrence: US)
  Receive Date: 20190405
  Receipt Date: 20190405
  Transmission Date: 20190711
  Serious: No
  Sender: FDA-Public Use
  Company Number: US-DRREDDYS-USA/USA/19/0109247

PATIENT
  Age: 59 Year
  Sex: Male

DRUGS (1)
  1. FLUCONAZOLE. [Suspect]
     Active Substance: FLUCONAZOLE
     Indication: MENINGITIS COCCIDIOIDES
     Dosage: 941 DAYS
     Route: 065

REACTIONS (3)
  - Treatment failure [Unknown]
  - Nausea [Recovered/Resolved]
  - Vomiting [Recovered/Resolved]
